FAERS Safety Report 4911218-3 (Version None)
Quarter: 2006Q1

REPORT INFORMATION
  Report Type: 
  Country: None (occurrence: None)
  Receive Date: 20060209
  Receipt Date: 20060202
  Transmission Date: 20060701
  Serious: Yes (Other)
  Sender: FDA-Public Use
  Company Number: 2006017399

PATIENT
  Sex: Female

DRUGS (1)
  1. LIPITOR [Suspect]
     Indication: ILL-DEFINED DISORDER
     Dosage: 80 MG , ORAL
     Route: 048

REACTIONS (3)
  - HEPATIC FUNCTION ABNORMAL [None]
  - RENAL FAILURE ACUTE [None]
  - RHABDOMYOLYSIS [None]
